FAERS Safety Report 13988975 (Version 1)
Quarter: 2017Q3

REPORT INFORMATION
  Report Type: Spontaneous
  Country: BR (occurrence: BR)
  Receive Date: 20170919
  Receipt Date: 20170919
  Transmission Date: 20171128
  Serious: Yes (Other)
  Sender: FDA-Public Use
  Company Number: BR-TORRENT-00004153

PATIENT
  Age: 31 Year
  Sex: Male

DRUGS (1)
  1. RESPIDON [Suspect]
     Active Substance: RISPERIDONE

REACTIONS (5)
  - Erectile dysfunction [Unknown]
  - Prescription drug used without a prescription [Unknown]
  - Fatigue [Unknown]
  - Brain hypoxia [Unknown]
  - Somnolence [Unknown]
